FAERS Safety Report 6816936-8 (Version None)
Quarter: 2010Q3

REPORT INFORMATION
  Report Type: 
  Country: None (occurrence: None)
  Receive Date: 20100706
  Receipt Date: 20100701
  Transmission Date: 20110219
  Serious: Yes (Other)
  Sender: FDA-Public Use
  Company Number: AU-BRISTOL-MYERS SQUIBB COMPANY-15175441

PATIENT
  Sex: Female

DRUGS (7)
  1. AVAPRO [Suspect]
     Dates: start: 19900101
  2. ADALAT [Concomitant]
  3. ASPIRIN [Concomitant]
  4. FERROUS SULFATE [Concomitant]
  5. SODIUM BICARBONATE [Concomitant]
     Dosage: 2 TO 3 TIMES
  6. CALTRATE [Concomitant]
  7. OXYCODONE HCL [Concomitant]

REACTIONS (2)
  - MEDICATION ERROR [None]
  - RENAL FAILURE [None]
